FAERS Safety Report 23782221 (Version 1)
Quarter: 2024Q2

REPORT INFORMATION
  Report Type: Spontaneous
  Country: GB (occurrence: None)
  Receive Date: 20240425
  Receipt Date: 20240425
  Transmission Date: 20240716
  Serious: Yes (Other)
  Sender: FDA-Public Use
  Company Number: GB-Allegis Pharmaceuticals, LLC-APL202404-000026

PATIENT
  Age: 67 Year
  Sex: Female
  Weight: 95 kg

DRUGS (3)
  1. NITROGLYCERIN [Suspect]
     Active Substance: NITROGLYCERIN
     Indication: Vasodilation procedure
     Dosage: 0.8 MG 1/ TOTAL (TWO SPRAYS OF NITROLINGUAL)
     Route: 060
     Dates: start: 20240410, end: 20240410
  2. METOPROLOL [Suspect]
     Active Substance: METOPROLOL
     Indication: Computerised tomogram
     Dates: start: 20240410, end: 20240410
  3. OPTIRAY [Suspect]
     Active Substance: IOVERSOL
     Indication: Computerised tomogram
     Dosage: 350 90MLS
     Dates: start: 20240410, end: 20240410

REACTIONS (2)
  - Bronchospasm [Recovered/Resolved]
  - Off label use [Unknown]

NARRATIVE: CASE EVENT DATE: 20240410
